FAERS Safety Report 5957647-0 (Version None)
Quarter: 2008Q4

REPORT INFORMATION
  Report Type: 
  Country: None (occurrence: None)
  Receive Date: 20081113
  Receipt Date: 20081029
  Transmission Date: 20090506
  Serious: Yes (Hospitalization)
  Sender: FDA-Public Use
  Company Number: 2008092789

PATIENT
  Age: 82 Year
  Sex: Female
  Weight: 98 kg

DRUGS (13)
  1. DALTEPARIN SODIUM [Suspect]
     Indication: DIABETIC FOOT
     Dates: start: 20080926
  2. OMEPRAZOLE [Concomitant]
  3. ACETYLSALICYLIC ACID SRT [Concomitant]
  4. BEHEPAN (CYANOCOBALAMIN) [Concomitant]
  5. ISOSORBIDE MONONITRATE [Concomitant]
  6. FUROSEMIDE [Concomitant]
  7. METOPROLOL TARTRATE [Concomitant]
  8. AMLODIPINE [Concomitant]
  9. LOSARTAN POTASSIUM [Concomitant]
  10. CITALOPRAM HYDROBROMIDE [Concomitant]
  11. INSULIN ASPART (INSULIN ASPART) [Concomitant]
  12. GLYCERYLNITRAT (GLYCERYL TRINITRATE) [Concomitant]
  13. SIMVASTATIN [Concomitant]

REACTIONS (3)
  - HYPERURICAEMIA [None]
  - OEDEMA PERIPHERAL [None]
  - PAIN IN EXTREMITY [None]
